FAERS Safety Report 16807899 (Version 1)
Quarter: 2019Q3

REPORT INFORMATION
  Report Type: Report from Study
  Country: AT (occurrence: AT)
  Receive Date: 20190915
  Receipt Date: 20190915
  Transmission Date: 20191005
  Serious: Yes (Death, Hospitalization, Other)
  Sender: FDA-Public Use
  Company Number: AT-CELGENEUS-009-CC292-14032024

PATIENT
  Age: 85 Year
  Sex: Male
  Weight: 59 kg

DRUGS (9)
  1. ACECOMB SEMI [Concomitant]
     Indication: HYPERTENSION
     Dosage: 10 MILLIGRAM
     Route: 048
     Dates: start: 2011
  2. CC-5013 [Suspect]
     Active Substance: LENALIDOMIDE
     Dosage: 5 MILLIGRAM
     Route: 048
     Dates: start: 20140304, end: 20140327
  3. GLANDOMED [Concomitant]
     Indication: PROPHYLAXIS
     Route: 048
     Dates: start: 20131216
  4. CC-5013 [Suspect]
     Active Substance: LENALIDOMIDE
     Indication: CHRONIC LYMPHOCYTIC LEUKAEMIA
     Dosage: 5 MILLIGRAM
     Route: 048
     Dates: start: 20131209
  5. MOLAXOLE [Concomitant]
     Active Substance: POLYETHYLENE GLYCOL 3350\POTASSIUM CHLORIDE\SODIUM BICARBONATE\SODIUM CHLORIDE
     Indication: PROPHYLAXIS
     Dosage: 1 BAG
     Route: 048
     Dates: start: 201305
  6. MAGNOSOLV [Concomitant]
     Indication: PROPHYLAXIS
     Dosage: 1 BAG
     Route: 048
     Dates: start: 201306
  7. CC-292 [Suspect]
     Active Substance: SPEBRUTINIB
     Indication: CHRONIC LYMPHOCYTIC LEUKAEMIA
     Route: 048
     Dates: start: 20131216
  8. CC-292 [Suspect]
     Active Substance: SPEBRUTINIB
     Route: 065
     Dates: start: 20140304, end: 20140327
  9. TRABENE [Concomitant]
     Indication: PAIN
     Route: 048
     Dates: start: 201305

REACTIONS (3)
  - Squamous cell carcinoma of skin [Recovered/Resolved]
  - Pneumonia [Recovered/Resolved]
  - Glioblastoma [Not Recovered/Not Resolved]

NARRATIVE: CASE EVENT DATE: 20140311
